FAERS Safety Report 24236532 (Version 1)
Quarter: 2024Q3

REPORT INFORMATION
  Report Type: Report from Study
  Country: US (occurrence: US)
  Receive Date: 20240822
  Receipt Date: 20240822
  Transmission Date: 20241016
  Serious: No
  Sender: ACADIA PHARMACEUTICALS
  Company Number: US-ACADIA PHARMACEUTICALS INC.-ACA-2024-PIM-004145

PATIENT
  Age: 73 Year
  Sex: Female

DRUGS (6)
  1. NUPLAZID [Suspect]
     Active Substance: PIMAVANSERIN TARTRATE
     Indication: Parkinson^s disease
     Dosage: 34 MILLIGRAM, BID
     Route: 048
     Dates: start: 20240702
  2. NUPLAZID [Suspect]
     Active Substance: PIMAVANSERIN TARTRATE
     Dosage: 34 MILLIGRAM, QD
     Route: 048
     Dates: start: 20240708, end: 20240715
  3. CARBIDOPA\LEVODOPA [Concomitant]
     Active Substance: CARBIDOPA\LEVODOPA
     Dosage: 10-100
  4. CETIRIZINE [Concomitant]
     Active Substance: CETIRIZINE HYDROCHLORIDE
     Dosage: 10 MILLIGRAM
  5. ESCITALOPRAM [Concomitant]
     Active Substance: ESCITALOPRAM OXALATE
     Dosage: 5 MILLIGRAM
  6. OLMESARTAN [Concomitant]
     Active Substance: OLMESARTAN
     Dosage: 20 MILLIGRAM

REACTIONS (1)
  - Accidental overdose [Recovered/Resolved]

NARRATIVE: CASE EVENT DATE: 20240708
